FAERS Safety Report 24196362 (Version 2)
Quarter: 2024Q3

REPORT INFORMATION
  Report Type: Spontaneous
  Country: US (occurrence: US)
  Receive Date: 20240809
  Receipt Date: 20240906
  Transmission Date: 20241017
  Serious: No
  Sender: MERCK
  Company Number: US-009507513-2408USA000005

PATIENT
  Sex: Female
  Weight: 50.8 kg

DRUGS (10)
  1. WINREVAIR [Suspect]
     Active Substance: SOTATERCEPT-CSRK
     Indication: Product used for unknown indication
     Dosage: UNK
     Dates: start: 2024, end: 2024
  2. REMODULIN [Suspect]
     Active Substance: TREPROSTINIL
     Indication: Pulmonary arterial hypertension
     Dosage: 0.050 MICROGRAM PER KILOGRAM
     Route: 041
     Dates: start: 2020
  3. MIDODRINE HYDROCHLORIDE [Concomitant]
     Active Substance: MIDODRINE HYDROCHLORIDE
  4. IMMUNE SUPPORT [CALCIUM ASCORBATE;COLECALCIFEROL;PYRIDOXINE HYDROCHLOR [Concomitant]
  5. SILDENAFIL CITRATE [Concomitant]
     Active Substance: SILDENAFIL CITRATE
  6. LETAIRIS [Concomitant]
     Active Substance: AMBRISENTAN
  7. OXYGEN [Concomitant]
     Active Substance: OXYGEN
  8. BIFIDOBACTERIUM ANIMALIS LACTIS [Concomitant]
     Active Substance: BIFIDOBACTERIUM ANIMALIS LACTIS
  9. MAGNESIUM [Concomitant]
     Active Substance: MAGNESIUM
  10. NADOLOL [Concomitant]
     Active Substance: NADOLOL

REACTIONS (1)
  - Fatigue [Recovering/Resolving]

NARRATIVE: CASE EVENT DATE: 20240101
